FAERS Safety Report 7440573-8 (Version None)
Quarter: 2011Q2

REPORT INFORMATION
  Report Type: 
  Country: None (occurrence: None)
  Receive Date: 20110427
  Receipt Date: 20110420
  Transmission Date: 20111010
  Serious: Yes (Death, Life-Threatening, Hospitalization)
  Sender: FDA-Public Use
  Company Number: B0614871A

PATIENT
  Sex: Male

DRUGS (14)
  1. DIOVAN [Concomitant]
     Route: 048
     Dates: end: 20100201
  2. ACTIT [Concomitant]
     Route: 042
     Dates: start: 20100119, end: 20100121
  3. FLUTICASONE PROPIONATE/SALMETEROL [Suspect]
     Indication: CHRONIC OBSTRUCTIVE PULMONARY DISEASE
     Dosage: 500MCG PER DAY
     Route: 055
     Dates: start: 20091008, end: 20100129
  4. DECADRON [Concomitant]
     Route: 042
     Dates: start: 20100114
  5. DIGOXIN [Concomitant]
     Indication: ARRHYTHMIA
     Route: 048
     Dates: end: 20100201
  6. NEOPHYLLIN [Concomitant]
     Route: 042
     Dates: start: 20100114
  7. FAMOTIDINE [Concomitant]
     Route: 042
     Dates: start: 20100114, end: 20100118
  8. UNIPHYL [Concomitant]
     Route: 048
     Dates: end: 20100101
  9. CLARITH [Concomitant]
     Indication: CHRONIC SINUSITIS
     Route: 048
     Dates: end: 20100201
  10. TPN ELECTROLYTES IN PLASTIC CONTAINER [Concomitant]
     Route: 042
     Dates: start: 20110110
  11. VEEN-3G [Concomitant]
     Route: 042
     Dates: start: 20100114
  12. SEISHOKU [Concomitant]
     Route: 042
     Dates: start: 20100114, end: 20100118
  13. PAZUCROSS [Concomitant]
     Route: 042
     Dates: start: 20100110, end: 20100121
  14. SPIRIVA [Concomitant]
     Route: 055
     Dates: end: 20100201

REACTIONS (7)
  - PNEUMONIA ASPIRATION [None]
  - PNEUMONIA [None]
  - COUGH [None]
  - DYSPNOEA [None]
  - PNEUMONIA BACTERIAL [None]
  - PRODUCTIVE COUGH [None]
  - PYREXIA [None]
